FAERS Safety Report 9390229 (Version 1)
Quarter: 2013Q3

REPORT INFORMATION
  Report Type: Spontaneous
  Country: DK (occurrence: DK)
  Receive Date: 20130708
  Receipt Date: 20130708
  Transmission Date: 20140515
  Serious: Yes (Hospitalization, Other)
  Sender: FDA-Public Use
  Company Number: DK-009507513-1307DNK000793

PATIENT
  Age: 71 Year
  Sex: Male

DRUGS (2)
  1. FOSAMAX UGETABLET [Suspect]
     Indication: OSTEOPOROSIS
     Dosage: STRENGH: 70 MG
     Route: 048
     Dates: start: 1992, end: 2009
  2. ACLASTA [Suspect]
     Indication: OSTEOPOROSIS
     Dosage: STRENGH: 5 MG/100 ML
     Route: 042
     Dates: start: 2009, end: 201206

REACTIONS (2)
  - Jaw operation [Unknown]
  - Osteonecrosis of jaw [Not Recovered/Not Resolved]
